FAERS Safety Report 6215616-X (Version None)
Quarter: 2009Q2

REPORT INFORMATION
  Report Type: 
  Country: None (occurrence: None)
  Receive Date: 20090603
  Receipt Date: 20090603
  Transmission Date: 20091009
  Serious: Yes (Life-Threatening, Hospitalization)
  Sender: FDA-Public Use
  Company Number: None

PATIENT
  Age: 66 Year
  Sex: Male

DRUGS (1)
  1. ACETYLCYSTEINE [Suspect]

REACTIONS (3)
  - BRONCHOSPASM [None]
  - CARDIO-RESPIRATORY ARREST [None]
  - CYANOSIS [None]
